FAERS Safety Report 17591488 (Version 1)
Quarter: 2020Q1

REPORT INFORMATION
  Report Type: Spontaneous
  Country: US (occurrence: US)
  Receive Date: 20200327
  Receipt Date: 20200327
  Transmission Date: 20200409
  Serious: No
  Sender: FDA-Public Use
  Company Number: US-NEPHRON STERILE COMPOUNDING CENTER-2082059

PATIENT

DRUGS (1)
  1. SODIUM CITRATE SOLUTION 4% [Suspect]
     Active Substance: SODIUM CITRATE
     Indication: PLATELET RICH PLASMA THERAPY
     Route: 050

REACTIONS (1)
  - Drug ineffective [Unknown]
